FAERS Safety Report 20827912 (Version 1)
Quarter: 2022Q2

REPORT INFORMATION
  Report Type: Spontaneous
  Country: IN (occurrence: IN)
  Receive Date: 20220513
  Receipt Date: 20220513
  Transmission Date: 20220721
  Serious: Yes (Hospitalization)
  Sender: FDA-Public Use
  Company Number: IN-LUPIN PHARMACEUTICALS INC.-2022-06959

PATIENT
  Age: 35 Year
  Sex: Male

DRUGS (1)
  1. CLOBETASOL [Suspect]
     Active Substance: CLOBETASOL
     Indication: Skin lesion
     Dosage: UNK CREAM NEARLY 200 GRAM WAS APPLIED
     Route: 061

REACTIONS (2)
  - Skin striae [Not Recovered/Not Resolved]
  - Intentional product misuse [Unknown]
